FAERS Safety Report 8107327-0 (Version None)
Quarter: 2012Q1

REPORT INFORMATION
  Report Type: 
  Country: None (occurrence: None)
  Receive Date: 20120202
  Receipt Date: 20120131
  Transmission Date: 20120608
  Serious: Yes (Life-Threatening, Hospitalization)
  Sender: FDA-Public Use
  Company Number: DE-B.I. PHARMACEUTICALS,INC./RIDGEFIELD-2012-DE-00330DE

PATIENT
  Age: 75 Year
  Sex: Female

DRUGS (5)
  1. PRADAXA [Suspect]
     Indication: DEEP VEIN THROMBOSIS
     Dosage: 220 MG
     Route: 048
     Dates: start: 20100901, end: 20111101
  2. INSULIN [Concomitant]
     Indication: DIABETES MELLITUS
     Route: 058
  3. AMITRYPTIN RETARD [Concomitant]
     Route: 048
  4. FENTANYL CITRATE [Concomitant]
     Route: 058
  5. PREDNISOLONE [Concomitant]

REACTIONS (5)
  - GASTROINTESTINAL HAEMORRHAGE [None]
  - PROTHROMBIN LEVEL DECREASED [None]
  - CARDIOVASCULAR DISORDER [None]
  - OVERDOSE [None]
  - HAEMOGLOBIN DECREASED [None]
